FAERS Safety Report 8167364-7 (Version None)
Quarter: 2012Q1

REPORT INFORMATION
  Report Type: 
  Country: None (occurrence: None)
  Receive Date: 20120221
  Receipt Date: 20120208
  Transmission Date: 20120608
  Serious: Yes (Death, Hospitalization)
  Sender: FDA-Public Use
  Company Number: 2012-00172

PATIENT
  Age: 36 Year
  Sex: Male

DRUGS (8)
  1. CLOZAPINE [Suspect]
     Indication: SCHIZOPHRENIA
     Dosage: (450 MG), ORAL
     Route: 048
     Dates: end: 20120109
  2. ARIPIPRAZOLE [Suspect]
     Indication: SCHIZOPHRENIA
     Dosage: (5 MG), ORAL
     Route: 048
  3. VALPROIC ACID [Concomitant]
  4. SIMVASTATIN [Suspect]
     Indication: PRODUCT USED FOR UNKNOWN INDICATION
     Dosage: ORAL
     Route: 048
  5. CLONAZEPAM [Concomitant]
  6. FOLIC ACID [Concomitant]
  7. OMEPRAZOLE [Concomitant]
  8. WARFARIN SODIUM [Concomitant]

REACTIONS (9)
  - RENAL IMPAIRMENT [None]
  - CIRCULATORY COLLAPSE [None]
  - NEUROLEPTIC MALIGNANT SYNDROME [None]
  - ASPARTATE AMINOTRANSFERASE INCREASED [None]
  - HEPATIC FUNCTION ABNORMAL [None]
  - BLOOD CREATINE PHOSPHOKINASE INCREASED [None]
  - SEPSIS [None]
  - HAEMOGLOBIN DECREASED [None]
  - ALANINE AMINOTRANSFERASE INCREASED [None]
